FAERS Safety Report 5490581-1 (Version None)
Quarter: 2007Q4

REPORT INFORMATION
  Report Type: 
  Country: None (occurrence: None)
  Receive Date: 20071019
  Receipt Date: 20071010
  Transmission Date: 20080405
  Serious: Yes (Other)
  Sender: FDA-Public Use
  Company Number: US-JNJFOC-20071002729

PATIENT
  Sex: Female
  Weight: 74.39 kg

DRUGS (8)
  1. REMICADE [Suspect]
     Indication: RHEUMATOID ARTHRITIS
     Dosage: 10 VIALS
     Route: 042
  2. METHOTREXATE [Concomitant]
  3. FOLIC ACID [Concomitant]
  4. ZETIA [Concomitant]
  5. TRICOR [Concomitant]
  6. PROZAR [Concomitant]
  7. REGLAN [Concomitant]
  8. PREMARIN [Concomitant]

REACTIONS (3)
  - BLISTER [None]
  - LYMPHADENOPATHY [None]
  - RASH [None]
